FAERS Safety Report 21444556 (Version 4)
Quarter: 2025Q1

REPORT INFORMATION
  Report Type: Spontaneous
  Country: US (occurrence: US)
  Receive Date: 20221012
  Receipt Date: 20250328
  Transmission Date: 20250409
  Serious: Yes (Other)
  Sender: RANBAXY
  Company Number: US-SUN PHARMACEUTICAL INDUSTRIES LTD-2022R1-358388

PATIENT
  Age: 60 Year
  Sex: Female

DRUGS (2)
  1. RANITIDINE [Suspect]
     Active Substance: RANITIDINE
     Indication: Dyspepsia
     Dosage: 25 MG AND 150 MG, DAILY
     Route: 065
     Dates: start: 199601, end: 201902
  2. RANITIDINE [Suspect]
     Active Substance: RANITIDINE
     Dosage: 25 MG AND 150 MG, DAILY
     Route: 065
     Dates: start: 199701, end: 201902

REACTIONS (1)
  - Colorectal cancer [Unknown]

NARRATIVE: CASE EVENT DATE: 20190801
